FAERS Safety Report 6285892-6 (Version None)
Quarter: 2009Q3

REPORT INFORMATION
  Report Type: 
  Country: None (occurrence: None)
  Receive Date: 20090728
  Receipt Date: 20090721
  Transmission Date: 20100115
  Serious: Yes (Hospitalization)
  Sender: FDA-Public Use
  Company Number: US-ELI_LILLY_AND_COMPANY-US200907004713

PATIENT
  Sex: Female

DRUGS (8)
  1. HUMULIN N [Suspect]
     Indication: TYPE 2 DIABETES MELLITUS
     Dosage: 20 U, EACH MORNING
     Dates: start: 20080101
  2. HUMULIN N [Suspect]
     Dosage: 15 U, EACH EVENING
  3. LIPITOR [Concomitant]
  4. OXYCODONE [Concomitant]
  5. DURAGESIC-100 [Concomitant]
  6. GLIPIZIDE [Concomitant]
  7. NEXIUM [Concomitant]
  8. LISINOPRIL [Concomitant]

REACTIONS (2)
  - MEDICAL DEVICE REMOVAL [None]
  - PAIN [None]
